FAERS Safety Report 14953622 (Version 1)
Quarter: 2018Q2

REPORT INFORMATION
  Report Type: Spontaneous
  Country: DE (occurrence: DE)
  Receive Date: 20180530
  Receipt Date: 20180530
  Transmission Date: 20180711
  Serious: Yes (Hospitalization, Other)
  Sender: FDA-Public Use
  Company Number: DE-PFIZER INC-2018216048

PATIENT
  Sex: Female

DRUGS (2)
  1. TRAZODON [Concomitant]
     Active Substance: TRAZODONE HYDROCHLORIDE
     Dosage: UNK
     Dates: start: 20170928
  2. TAVOR (LORAZEPAM) [Suspect]
     Active Substance: LORAZEPAM
     Dates: start: 201612

REACTIONS (4)
  - Intentional overdose [Unknown]
  - Suicidal ideation [Unknown]
  - Intentional self-injury [Unknown]
  - Amnesia [Unknown]

NARRATIVE: CASE EVENT DATE: 2017
